FAERS Safety Report 5133120-7 (Version None)
Quarter: 2006Q4

REPORT INFORMATION
  Report Type: 
  Country: None (occurrence: None)
  Receive Date: 20061017
  Receipt Date: 20061013
  Transmission Date: 20070319
  Serious: Yes (Death)
  Sender: FDA-Public Use
  Company Number: HQWYE348523JUN06

PATIENT
  Age: 58 Year
  Sex: Male

DRUGS (8)
  1. AVLOCARDYL (PROPRANOLOL HYDROCHLORIDE, TABLET) [Suspect]
  2. CLOMIPRAMINE HCL [Suspect]
  3. PRAZINIL (CARPIPRAMINE DIHYDROCHLORIDE, ) [Suspect]
  4. RISPERDAL [Suspect]
  5. CLONAZEPAM [Suspect]
  6. YOHIMBINE (YOHIMBINE, ) [Suspect]
  7. ZOLOFT [Suspect]
  8. ZOMIG [Suspect]
     Dosage: 2.5 MG TABLET
     Route: 048

REACTIONS (1)
  - ROAD TRAFFIC ACCIDENT [None]
